FAERS Safety Report 13396718 (Version 1)
Quarter: 2017Q1

REPORT INFORMATION
  Report Type: Spontaneous
  Country: US (occurrence: US)
  Receive Date: 20170330
  Receipt Date: 20170330
  Transmission Date: 20170429
  Serious: No
  Sender: FDA-Public Use
  Company Number: None

PATIENT

DRUGS (1)
  1. HYDROCODONE [Suspect]
     Active Substance: HYDROCODONE

REACTIONS (8)
  - Anxiety [None]
  - Dizziness [None]
  - Chest pain [None]
  - Dyspnoea [None]
  - Musculoskeletal chest pain [None]
  - Depression [None]
  - Fear [None]
  - Documented hypersensitivity to administered product [None]
